FAERS Safety Report 7450861-7 (Version None)
Quarter: 2011Q2

REPORT INFORMATION
  Report Type: 
  Country: None (occurrence: None)
  Receive Date: 20110422
  Receipt Date: 20110413
  Transmission Date: 20111010
  Serious: Yes (Other)
  Sender: FDA-Public Use
  Company Number: TPA2010A05672

PATIENT
  Age: 77 Year
  Sex: Female

DRUGS (3)
  1. ULORIC [Suspect]
     Indication: HYPERURICAEMIA
     Dosage: PER ORAL
     Route: 048
     Dates: start: 20101001, end: 20100101
  2. COLCHIMAX (COLCHICINE, TIEMONIUM METHYLSULPHATE, PAPAVER SOMNIFERUM PO [Suspect]
     Indication: GOUT
     Dosage: PER ORAL
     Route: 048
  3. CELECTOL (CELIPROLOL HYDROCHLORIDE) [Concomitant]

REACTIONS (3)
  - FULL BLOOD COUNT ABNORMAL [None]
  - LEUKAEMIA [None]
  - SYSTEMIC INFLAMMATORY RESPONSE SYNDROME [None]
